FAERS Safety Report 7581877-8 (Version None)
Quarter: 2011Q2

REPORT INFORMATION
  Report Type: 
  Country: None (occurrence: None)
  Receive Date: 20110629
  Receipt Date: 20101028
  Transmission Date: 20111010
  Serious: Yes (Hospitalization)
  Sender: FDA-Public Use
  Company Number: PHHY2010TW66404

PATIENT
  Sex: Male

DRUGS (6)
  1. EXJADE [Suspect]
     Indication: IRON OVERLOAD
     Dosage: 1000 MG, UNK
     Dates: start: 20090715
  2. GRANULOCYTE COLONY STIMULATING FACTOR [Concomitant]
     Dates: start: 20100930, end: 20101013
  3. VALGANCICLOVIR [Concomitant]
  4. CYCLOSPORINE [Concomitant]
  5. TACROLIMUS [Concomitant]
     Dates: start: 20101013
  6. METHYLPREDNISOLONE [Concomitant]
     Dosage: 1 G, QD
     Dates: start: 20101008, end: 20101010

REACTIONS (3)
  - WHITE BLOOD CELL COUNT DECREASED [None]
  - HAEMOGLOBIN DECREASED [None]
  - TRANSPLANT REJECTION [None]
